FAERS Safety Report 21297159 (Version 1)
Quarter: 2022Q3

REPORT INFORMATION
  Report Type: Spontaneous
  Country: US (occurrence: US)
  Receive Date: 20220906
  Receipt Date: 20220906
  Transmission Date: 20221026
  Serious: Yes (Hospitalization, Other)
  Sender: FDA-Public Use
  Company Number: US-drreddys-SPO/USA/22/0154148

PATIENT
  Age: 39 Year
  Sex: Female

DRUGS (25)
  1. CAPECITABINE [Suspect]
     Active Substance: CAPECITABINE
     Indication: Metastases to chest wall
  2. CAPECITABINE [Suspect]
     Active Substance: CAPECITABINE
     Indication: Metastases to liver
  3. CAPECITABINE [Suspect]
     Active Substance: CAPECITABINE
     Indication: Metastases to central nervous system
  4. CAPECITABINE [Suspect]
     Active Substance: CAPECITABINE
     Indication: Metastases to lymph nodes
  5. CAPECITABINE [Suspect]
     Active Substance: CAPECITABINE
     Indication: Hormone receptor positive breast cancer
  6. CAPECITABINE [Suspect]
     Active Substance: CAPECITABINE
     Indication: HER2 positive breast cancer
  7. CAPECITABINE [Suspect]
     Active Substance: CAPECITABINE
     Indication: Breast cancer metastatic
  8. CAPECITABINE [Suspect]
     Active Substance: CAPECITABINE
     Indication: Hormone receptor positive breast cancer
  9. TUCATINIB [Concomitant]
     Active Substance: TUCATINIB
     Indication: Breast cancer metastatic
  10. TUCATINIB [Concomitant]
     Active Substance: TUCATINIB
     Indication: Hormone receptor positive breast cancer
  11. TUCATINIB [Concomitant]
     Active Substance: TUCATINIB
     Indication: Metastases to chest wall
  12. TUCATINIB [Concomitant]
     Active Substance: TUCATINIB
     Indication: Hormone receptor positive breast cancer
  13. TUCATINIB [Concomitant]
     Active Substance: TUCATINIB
     Indication: Metastases to liver
  14. TUCATINIB [Concomitant]
     Active Substance: TUCATINIB
     Indication: HER2 positive breast cancer
  15. TUCATINIB [Concomitant]
     Active Substance: TUCATINIB
     Indication: Metastases to central nervous system
  16. TUCATINIB [Concomitant]
     Active Substance: TUCATINIB
     Indication: Metastases to lymph nodes
  17. HERCEPTIN [Concomitant]
     Active Substance: TRASTUZUMAB
     Indication: Metastases to chest wall
  18. HERCEPTIN [Concomitant]
     Active Substance: TRASTUZUMAB
     Indication: HER2 positive breast cancer
  19. HERCEPTIN [Concomitant]
     Active Substance: TRASTUZUMAB
     Indication: Metastases to liver
  20. HERCEPTIN [Concomitant]
     Active Substance: TRASTUZUMAB
     Indication: Metastases to lymph nodes
  21. HERCEPTIN [Concomitant]
     Active Substance: TRASTUZUMAB
     Indication: Metastases to central nervous system
  22. HERCEPTIN [Concomitant]
     Active Substance: TRASTUZUMAB
     Indication: Hormone receptor positive breast cancer
  23. HERCEPTIN [Concomitant]
     Active Substance: TRASTUZUMAB
     Indication: Hormone receptor positive breast cancer
  24. HERCEPTIN [Concomitant]
     Active Substance: TRASTUZUMAB
     Indication: Breast cancer metastatic
  25. HEPARIN SODIUM [Concomitant]
     Active Substance: HEPARIN SODIUM
     Indication: Pulmonary embolism

REACTIONS (1)
  - Palmar-plantar erythrodysaesthesia syndrome [Unknown]
